FAERS Safety Report 8111200-1 (Version None)
Quarter: 2012Q1

REPORT INFORMATION
  Report Type: 
  Country: None (occurrence: None)
  Receive Date: 20120203
  Receipt Date: 20110617
  Transmission Date: 20120608
  Serious: No
  Sender: FDA-Public Use
  Company Number: US-GLAXOSMITHKLINE-A0931870A

PATIENT
  Sex: Female

DRUGS (4)
  1. PROBIOTICS [Concomitant]
  2. AMBIEN [Concomitant]
  3. KLONOPIN [Concomitant]
  4. LAMICTAL [Suspect]
     Indication: DEPRESSION
     Dosage: 100MG PER DAY
     Route: 048
     Dates: start: 20070101

REACTIONS (2)
  - ABDOMINAL DISTENSION [None]
  - ENDOMETRIAL HYPERTROPHY [None]
